FAERS Safety Report 23229034 (Version 1)
Quarter: 2023Q4

REPORT INFORMATION
  Report Type: Spontaneous
  Country: None (occurrence: CN)
  Receive Date: 20231126
  Receipt Date: 20231126
  Transmission Date: 20240110
  Serious: Yes (Hospitalization, Other)
  Sender: FDA-Public Use
  Company Number: CN-Oxford Pharmaceuticals, LLC-2148701

PATIENT
  Age: 60 Year
  Sex: Male

DRUGS (3)
  1. LEVETIRACETAM [Suspect]
     Active Substance: LEVETIRACETAM
     Indication: Generalised tonic-clonic seizure
     Route: 048
  2. VALPROATE SODIUM [Suspect]
     Active Substance: VALPROATE SODIUM
     Route: 048
  3. DIAZEPAM [Suspect]
     Active Substance: DIAZEPAM
     Route: 042

REACTIONS (2)
  - Seizure [Unknown]
  - Drug resistance [Unknown]
